FAERS Safety Report 9790205 (Version 1)
Quarter: 2013Q4

REPORT INFORMATION
  Report Type: Spontaneous
  Country: IT (occurrence: IT)
  Receive Date: 20131231
  Receipt Date: 20131231
  Transmission Date: 20140711
  Serious: Yes (Hospitalization)
  Sender: FDA-Public Use
  Company Number: IT-JNJFOC-20131214755

PATIENT
  Age: 51 Year
  Sex: Female
  Weight: 55 kg

DRUGS (2)
  1. SPORANOX [Suspect]
     Indication: SUPERINFECTION
     Route: 048
     Dates: start: 20131121, end: 20131127
  2. AURADOL [Concomitant]
     Indication: PRODUCT USED FOR UNKNOWN INDICATION
     Route: 048

REACTIONS (5)
  - Eyelid oedema [Recovering/Resolving]
  - Oedema [Recovering/Resolving]
  - Oedema peripheral [Recovering/Resolving]
  - Pruritus [Recovering/Resolving]
  - Urticaria [Recovering/Resolving]
